FAERS Safety Report 9230526 (Version 2)
Quarter: 2013Q2

REPORT INFORMATION
  Report Type: Spontaneous
  Country: US (occurrence: None)
  Receive Date: 20121031
  Receipt Date: 20130107
  Transmission Date: 20140414
  Serious: Yes (Other)
  Sender: FDA-Public Use
  Company Number: PHEH2012US016967

PATIENT
  Age: 32 Year
  Sex: Female
  Weight: 77.1 kg

DRUGS (4)
  1. GILENYA (FTY)CAPSULE, 0.5MG [Suspect]
     Indication: MULTIPLE SCLEROSIS
     Route: 048
     Dates: start: 20120821
  2. LOSARTAN (LOSARTAN) [Concomitant]
  3. VITAMIN D (ERGOCALCIFEROL) [Concomitant]
  4. VITAMINB12 (CYANOCOBALMIN) [Concomitant]

REACTIONS (11)
  - Fatigue [None]
  - Pain in extremity [None]
  - Chest discomfort [None]
  - Eye pain [None]
  - Panic attack [None]
  - Hypoaesthesia [None]
  - Chest pain [None]
  - Hyperventilation [None]
  - Visual impairment [None]
  - Vision blurred [None]
  - Dyspnoea [None]
